FAERS Safety Report 5643361-8 (Version None)
Quarter: 2008Q1

REPORT INFORMATION
  Report Type: 
  Country: None (occurrence: None)
  Receive Date: 20080131
  Receipt Date: 20071025
  Transmission Date: 20080703
  Serious: Yes (Hospitalization)
  Sender: FDA-Public Use
  Company Number: 163-21880-07100360

PATIENT
  Age: 70 Year
  Sex: Female

DRUGS (3)
  1. REVLIMID [Suspect]
     Indication: MULTIPLE MYELOMA
     Dosage: 15 MG, DAILY FOR 21 DAYS, ORAL; 25 MG, DAILY FOR 21 DAYS, ORAL
     Route: 048
     Dates: start: 20070921, end: 20070928
  2. REVLIMID [Suspect]
     Indication: MULTIPLE MYELOMA
     Dosage: 15 MG, DAILY FOR 21 DAYS, ORAL; 25 MG, DAILY FOR 21 DAYS, ORAL
     Route: 048
     Dates: start: 20071009
  3. ASPIRIN [Concomitant]

REACTIONS (3)
  - ASTHENIA [None]
  - DIZZINESS [None]
  - SOMNOLENCE [None]
